FAERS Safety Report 4533180-8 (Version None)
Quarter: 2004Q4

REPORT INFORMATION
  Report Type: 
  Country: None (occurrence: None)
  Receive Date: 20041107
  Receipt Date: 20031027
  Transmission Date: 20050328
  Serious: Yes (Hospitalization)
  Sender: FDA-Public Use
  Company Number: 700322

PATIENT
  Sex: Male

DRUGS (12)
  1. DIANEAL [Suspect]
     Indication: PERITONEAL DIALYSIS
     Dosage: INTRAPERITONEAL
     Route: 033
  2. CLONIDINE [Concomitant]
  3. ELAVIL [Concomitant]
  4. METROPOLOL [Concomitant]
  5. ALTACE [Concomitant]
  6. COMBIVENT [Concomitant]
  7. ZOCOR [Concomitant]
  8. ISOSORBIDE [Concomitant]
  9. GLYBURIDE [Concomitant]
  10. ALLEGRA [Concomitant]
  11. ZANTAC [Concomitant]
  12. ASPIRIN [Concomitant]

REACTIONS (2)
  - ABDOMINAL PAIN [None]
  - PERITONITIS [None]
